FAERS Safety Report 9373895 (Version 2)
Quarter: 2013Q3

REPORT INFORMATION
  Report Type: Spontaneous
  Country: SE (occurrence: SE)
  Receive Date: 20130628
  Receipt Date: 20130730
  Transmission Date: 20140515
  Serious: Yes (Death)
  Sender: FDA-Public Use
  Company Number: SE-ROCHE-1242271

PATIENT
  Age: 78 Year
  Sex: Male

DRUGS (3)
  1. ROACTEMRA [Suspect]
     Indication: RHEUMATOID ARTHRITIS
     Dosage: CONCENTRATE FOR SOLUTION FOR INFUSION 20 MG/ML
     Route: 042
     Dates: start: 20090113, end: 20121017
  2. METOTREXAT [Concomitant]
     Route: 065
     Dates: start: 2000
  3. PREDNISOLON [Concomitant]
     Route: 065
     Dates: start: 2000

REACTIONS (1)
  - Malignant urinary tract neoplasm [Fatal]
